FAERS Safety Report 9918111 (Version 1)
Quarter: 2014Q1

REPORT INFORMATION
  Report Type: Spontaneous
  Country: US (occurrence: US)
  Receive Date: 20140223
  Receipt Date: 20140223
  Transmission Date: 20141002
  Serious: No
  Sender: FDA-Public Use
  Company Number: US-ALLERGAN-1301224US

PATIENT
  Age: 82 Year
  Sex: Female

DRUGS (2)
  1. TAZORAC CREAM 0.1% [Suspect]
     Indication: SKIN EXFOLIATION
     Dosage: UNK UNK, QHS
     Route: 061
     Dates: start: 20130114, end: 20130118
  2. IMIQUIMOD [Concomitant]
     Indication: SQUAMOUS CELL CARCINOMA
     Dosage: UNK
     Route: 061
     Dates: start: 201212

REACTIONS (7)
  - Application site erythema [Unknown]
  - Application site swelling [Unknown]
  - Application site pain [Unknown]
  - Application site erosion [Unknown]
  - Application site ulcer [Unknown]
  - Application site reaction [Unknown]
  - Off label use [Unknown]
